FAERS Safety Report 9456065 (Version 3)
Quarter: 2013Q3

REPORT INFORMATION
  Report Type: Spontaneous
  Country: JP (occurrence: JP)
  Receive Date: 20130813
  Receipt Date: 20130919
  Transmission Date: 20140515
  Serious: Yes (Hospitalization)
  Sender: FDA-Public Use
  Company Number: JP-ROCHE-1261162

PATIENT
  Age: 71 Year
  Sex: Female
  Weight: 70 kg

DRUGS (7)
  1. ACTEMRA [Suspect]
     Indication: RHEUMATOID ARTHRITIS
     Route: 041
     Dates: start: 20110922, end: 20130718
  2. URSODEOXYCHOLIC ACID [Suspect]
     Indication: CHOLECYSTITIS
     Route: 048
     Dates: start: 200903, end: 20130807
  3. SELBEX [Concomitant]
     Indication: PROPHYLAXIS
     Route: 048
     Dates: start: 200903
  4. UBIDECARENONE [Concomitant]
     Indication: CARDIAC FAILURE CHRONIC
     Dosage: DRUG REPORTED DEKASOFT
     Route: 048
  5. DENOPAMINE [Concomitant]
     Indication: CARDIAC FAILURE CHRONIC
     Dosage: DRUG REPORTED HERPAMINE
     Route: 048
  6. CONIEL [Concomitant]
     Indication: HYPERTENSION
     Route: 048
  7. MECOBALAMIN [Concomitant]
     Indication: PROPHYLAXIS
     Route: 048
     Dates: start: 20111119

REACTIONS (1)
  - Interstitial lung disease [Not Recovered/Not Resolved]
